FAERS Safety Report 17014171 (Version 1)
Quarter: 2019Q4

REPORT INFORMATION
  Report Type: Report from Study
  Country: None (occurrence: BE)
  Receive Date: 20191111
  Receipt Date: 20191111
  Transmission Date: 20200122
  Serious: Yes (Hospitalization, Other)
  Sender: FDA-Public Use
  Company Number: BE-ABBVIE-19K-013-2996871-00

PATIENT
  Sex: Female
  Weight: 4.1 kg

DRUGS (1)
  1. SYNAGIS [Suspect]
     Active Substance: PALIVIZUMAB
     Indication: PRODUCT USED FOR UNKNOWN INDICATION
     Dosage: DOSE: 0.62
     Route: 030

REACTIONS (4)
  - Pneumonia [Unknown]
  - Hypophagia [Unknown]
  - Fluid intake reduced [Unknown]
  - Malaise [Unknown]

NARRATIVE: CASE EVENT DATE: 20191107
